FAERS Safety Report 7609650-2 (Version None)
Quarter: 2011Q3

REPORT INFORMATION
  Report Type: 
  Country: None (occurrence: None)
  Receive Date: 20110714
  Receipt Date: 20110705
  Transmission Date: 20111222
  Serious: Yes (Other)
  Sender: FDA-Public Use
  Company Number: US-ASTRAZENECA-2011SE29818

PATIENT
  Age: 81 Year
  Sex: Male

DRUGS (3)
  1. NEXIUM [Suspect]
     Route: 048
  2. AFINITOR PILLS [Concomitant]
  3. TOPROL-XL [Suspect]
     Route: 048

REACTIONS (4)
  - NEOPLASM MALIGNANT [None]
  - ABDOMINAL DISCOMFORT [None]
  - TREATMENT NONCOMPLIANCE [None]
  - DRUG DOSE OMISSION [None]
